FAERS Safety Report 10177858 (Version 1)
Quarter: 2014Q2

REPORT INFORMATION
  Report Type: Spontaneous
  Country: ZA (occurrence: ZA)
  Receive Date: 20140516
  Receipt Date: 20140516
  Transmission Date: 20141212
  Serious: Yes (Hospitalization)
  Sender: FDA-Public Use
  Company Number: ZA-ABBVIE-14P-143-1236507-00

PATIENT
  Age: 69 Year
  Sex: Female

DRUGS (2)
  1. HUMIRA [Suspect]
     Indication: RHEUMATOID ARTHRITIS
     Route: 058
     Dates: start: 201402
  2. CORTISONE [Concomitant]
     Indication: PRODUCT USED FOR UNKNOWN INDICATION

REACTIONS (7)
  - Heart rate increased [Unknown]
  - Palpitations [Recovering/Resolving]
  - Cardiac fibrillation [Unknown]
  - Aortic valve calcification [Unknown]
  - Pulmonary oedema [Unknown]
  - Hepatic enzyme abnormal [Unknown]
  - Lung disorder [Unknown]
